FAERS Safety Report 9035474 (Version 1)
Quarter: 2013Q1

REPORT INFORMATION
  Report Type: Report from Study
  Country: US (occurrence: US)
  Receive Date: 20130129
  Receipt Date: 20130129
  Transmission Date: 20140127
  Serious: No
  Sender: FDA-Public Use
  Company Number: US-ABBOTT-12P-163-0905365-00

PATIENT
  Age: 36 Year
  Sex: Female

DRUGS (6)
  1. HUMIRA 40 MG/0.8 ML PEN [Suspect]
     Indication: ANKYLOSING SPONDYLITIS
     Dates: start: 201103
  2. LAMICTAL [Concomitant]
     Indication: EPILEPSY
  3. SELBATOL [Concomitant]
     Indication: EPILEPSY
  4. GEODON [Concomitant]
     Indication: EPILEPSY
  5. CLONAZEPAM [Concomitant]
     Indication: EPILEPSY
  6. PIROXICAM [Concomitant]
     Indication: ANKYLOSING SPONDYLITIS

REACTIONS (7)
  - Ankylosing spondylitis [Not Recovered/Not Resolved]
  - Rash [Not Recovered/Not Resolved]
  - Rash [Not Recovered/Not Resolved]
  - Pyrexia [Not Recovered/Not Resolved]
  - Diarrhoea [Not Recovered/Not Resolved]
  - Device malfunction [Unknown]
  - Drug dose omission [Unknown]
